FAERS Safety Report 15347003 (Version 1)
Quarter: 2018Q3

REPORT INFORMATION
  Report Type: Spontaneous
  Country: US (occurrence: US)
  Receive Date: 20180904
  Receipt Date: 20180904
  Transmission Date: 20181010
  Serious: No
  Sender: FDA-Public Use
  Company Number: US-ELI_LILLY_AND_COMPANY-US201808010936

PATIENT
  Sex: Female

DRUGS (2)
  1. IMODIUM [Concomitant]
     Active Substance: LOPERAMIDE HYDROCHLORIDE
     Indication: DIARRHOEA
  2. VERZENIO [Suspect]
     Active Substance: ABEMACICLIB
     Indication: BREAST CANCER
     Dosage: UNK, UNKNOWN
     Route: 065
     Dates: start: 201803, end: 201807

REACTIONS (8)
  - Paraesthesia [Recovering/Resolving]
  - Dental caries [Recovering/Resolving]
  - Dry eye [Recovering/Resolving]
  - Photosensitivity reaction [Recovering/Resolving]
  - Diarrhoea [Recovering/Resolving]
  - Drug ineffective [Unknown]
  - Joint swelling [Recovering/Resolving]
  - Peripheral swelling [Recovering/Resolving]
